FAERS Safety Report 4888911-4 (Version None)
Quarter: 2005Q4

REPORT INFORMATION
  Report Type: 
  Country: None (occurrence: None)
  Receive Date: 20051215
  Receipt Date: 20050812
  Transmission Date: 20060501
  Serious: Yes (Hospitalization, Other)
  Sender: FDA-Public Use
  Company Number: 2005062876

PATIENT
  Age: 25 Year
  Sex: Female
  Weight: 61.2356 kg

DRUGS (4)
  1. BEXTRA [Suspect]
     Indication: NECK PAIN
     Dosage: 40 MG (20 MG, 2 IN 1 D), ORAL
     Route: 048
     Dates: start: 20041001, end: 20041111
  2. ORTHO TRI-CYCLEN [Suspect]
     Indication: CONTRACEPTION
     Dosage: (1 IN 1 D), ORAL
     Route: 048
     Dates: start: 20010901, end: 20041111
  3. CYCLOBENZAPRINE HCL [Suspect]
     Indication: ILL-DEFINED DISORDER
     Dates: start: 20040101, end: 20041101
  4. CLARITIN [Concomitant]

REACTIONS (8)
  - BRONCHITIS [None]
  - CHEST X-RAY ABNORMAL [None]
  - DRUG INTERACTION [None]
  - FLATULENCE [None]
  - MUSCULOSKELETAL DISORDER [None]
  - PAIN [None]
  - PULMONARY EMBOLISM [None]
  - THROMBOSIS [None]
